FAERS Safety Report 6611041-8 (Version None)
Quarter: 2010Q1

REPORT INFORMATION
  Report Type: 
  Country: None (occurrence: None)
  Receive Date: 20100303
  Receipt Date: 20100217
  Transmission Date: 20100710
  Serious: Yes (Hospitalization, Other)
  Sender: FDA-Public Use
  Company Number: GB-RANBAXY-2009RR-29593

PATIENT
  Age: 15 Year
  Sex: Female

DRUGS (6)
  1. FLUOXETINE [Suspect]
     Indication: BULIMIA NERVOSA
     Dosage: 20 MG, UNK
  2. FLUOXETINE [Suspect]
     Indication: DEPRESSION
  3. FLUOXETINE [Suspect]
     Dosage: 40 MG, UNK
  4. FLUOXETINE [Suspect]
  5. REMERON [Suspect]
     Indication: DEPRESSION
     Dosage: 30 MG, QD
     Route: 065
  6. QUETIAPINE [Suspect]
     Indication: DEPRESSION
     Dosage: 50 MG, BID

REACTIONS (10)
  - ANXIETY [None]
  - BULIMIA NERVOSA [None]
  - DRUG ABUSE [None]
  - INTENTIONAL SELF-INJURY [None]
  - LACERATION [None]
  - NO THERAPEUTIC RESPONSE [None]
  - OVERDOSE [None]
  - SUICIDAL BEHAVIOUR [None]
  - THERAPEUTIC RESPONSE DECREASED [None]
  - WEIGHT INCREASED [None]
